FAERS Safety Report 7885120-1 (Version None)
Quarter: 2011Q4

REPORT INFORMATION
  Report Type: 
  Country: None (occurrence: None)
  Receive Date: 20111102
  Receipt Date: 20111028
  Transmission Date: 20120403
  Serious: Yes (Hospitalization)
  Sender: FDA-Public Use
  Company Number: GB-ABBOTT-11P-167-0869755-00

PATIENT
  Age: 77 Year
  Sex: Female

DRUGS (2)
  1. VALPROATE SODIUM [Suspect]
     Indication: BIPOLAR DISORDER
     Dosage: 1 GRAM DAILY
  2. ABILIFY [Suspect]
     Indication: BIPOLAR DISORDER
     Dates: start: 20080801

REACTIONS (1)
  - CHEST PAIN [None]
